FAERS Safety Report 14198885 (Version 1)
Quarter: 2017Q4

REPORT INFORMATION
  Report Type: Spontaneous
  Country: US (occurrence: None)
  Receive Date: 20171116
  Receipt Date: 20171116
  Transmission Date: 20180321
  Serious: No
  Sender: FDA-Public Use
  Company Number: None

PATIENT
  Age: 67 Year
  Sex: Female

DRUGS (1)
  1. REPATHA [Suspect]
     Active Substance: EVOLOCUMAB
     Indication: TYPE V HYPERLIPIDAEMIA
     Dosage: 140MG/ML EVERY 2 WEEKS ABDOMEN, THIGH, AND UPPER ARM
     Dates: start: 20170802, end: 20171017

REACTIONS (1)
  - Urticaria [None]

NARRATIVE: CASE EVENT DATE: 20171112
